FAERS Safety Report 7006044-8 (Version None)
Quarter: 2010Q3

REPORT INFORMATION
  Report Type: 
  Country: None (occurrence: None)
  Receive Date: 20100921
  Receipt Date: 20100914
  Transmission Date: 20110219
  Serious: Yes (Death, Hospitalization, Disabling, Other)
  Sender: FDA-Public Use
  Company Number: US-GENZYME-CLOF-10712

PATIENT
  Sex: Male

DRUGS (2)
  1. PLACEBO [Suspect]
     Indication: ACUTE MYELOID LEUKAEMIA
     Dates: start: 20071005, end: 20071009
  2. ARA-C [Suspect]
     Indication: ACUTE MYELOID LEUKAEMIA
     Dosage: UNK
     Dates: start: 20071005, end: 20071008

REACTIONS (7)
  - AGITATION [None]
  - CONFUSIONAL STATE [None]
  - ENCEPHALOPATHY [None]
  - ENTEROCOCCAL BACTERAEMIA [None]
  - HYPERTENSION [None]
  - MALIGNANT NEOPLASM PROGRESSION [None]
  - RESPIRATORY DISTRESS [None]
